FAERS Safety Report 7469911-7 (Version None)
Quarter: 2011Q2

REPORT INFORMATION
  Report Type: 
  Country: None (occurrence: None)
  Receive Date: 20110510
  Receipt Date: 20110128
  Transmission Date: 20111010
  Serious: Yes (Hospitalization)
  Sender: FDA-Public Use
  Company Number: FR-ROCHE-756432

PATIENT
  Sex: Male

DRUGS (5)
  1. AMLODIPINE BESYLATE [Suspect]
     Indication: HYPERTENSION
     Route: 048
  2. PREDNISONE [Suspect]
     Indication: RENAL TRANSPLANT
     Dosage: FREQUENCY: ONCE DAILY
     Route: 048
     Dates: start: 20080901
  3. CELLCEPT [Suspect]
     Indication: RENAL TRANSPLANT
     Route: 048
     Dates: start: 20080901
  4. PROGRAF [Suspect]
     Indication: RENAL TRANSPLANT
     Route: 048
     Dates: start: 20080901
  5. CANDESARTAN CILEXETIL [Suspect]
     Indication: HYPERTENSION
     Route: 048

REACTIONS (1)
  - CEREBROVASCULAR ACCIDENT [None]
